FAERS Safety Report 7926927-1 (Version None)
Quarter: 2011Q4

REPORT INFORMATION
  Report Type: 
  Country: None (occurrence: None)
  Receive Date: 20111118
  Receipt Date: 20111104
  Transmission Date: 20120403
  Serious: Yes (Other)
  Sender: FDA-Public Use
  Company Number: CA-ELI_LILLY_AND_COMPANY-CA201110006640

PATIENT
  Sex: Female
  Weight: 64.762 kg

DRUGS (7)
  1. FORTEO [Suspect]
     Indication: OSTEOPOROSIS POSTMENOPAUSAL
     Dosage: 20 UG, QD
     Route: 058
     Dates: start: 20100105
  2. PRAMIPEXOLE DIHYDROCHLORIDE [Concomitant]
  3. TYLENOL                                 /SCH/ [Concomitant]
     Dosage: UNK, PRN
  4. LEVOTHYROXINE SODIUM [Concomitant]
  5. FORTEO [Suspect]
     Dosage: 20 UG, QD
     Route: 058
  6. VITAMIN D [Concomitant]
  7. PROLOPA [Concomitant]

REACTIONS (3)
  - FALL [None]
  - PAIN IN EXTREMITY [None]
  - FEMUR FRACTURE [None]
